FAERS Safety Report 14580876 (Version 1)
Quarter: 2018Q1

REPORT INFORMATION
  Report Type: Spontaneous
  Country: DE (occurrence: DE)
  Receive Date: 20180228
  Receipt Date: 20180228
  Transmission Date: 20180509
  Serious: Yes (Other)
  Sender: FDA-Public Use
  Company Number: DE-SUN PHARMACEUTICAL INDUSTRIES LTD-2018R1-164514

PATIENT
  Age: 82 Year
  Sex: Female

DRUGS (2)
  1. OCTREOTID [Suspect]
     Active Substance: OCTREOTIDE
     Indication: INSULINOMA
     Dosage: 0.2 MG, DAILY (DAILY DOSE: 0.2 MG MILLIGRAM(S) EVERY DAY)
     Route: 058
  2. DIAZOXID [Concomitant]
     Indication: INSULINOMA
     Dosage: 300 MG, DAILY (DAILY DOSE: 300 MG MILLIGRAM(S) EVERY DAY)
     Route: 065

REACTIONS (2)
  - Fluid retention [Unknown]
  - Recurrent cancer [Unknown]
